FAERS Safety Report 12074823 (Version 2)
Quarter: 2016Q2

REPORT INFORMATION
  Report Type: Spontaneous
  Country: AT (occurrence: AT)
  Receive Date: 20160212
  Receipt Date: 20160608
  Transmission Date: 20160815
  Serious: Yes (Hospitalization, Other)
  Sender: FDA-Public Use
  Company Number: AT-ELI_LILLY_AND_COMPANY-AT201602000133

PATIENT
  Age: 47 Year
  Sex: Female
  Weight: 83 kg

DRUGS (31)
  1. SEROQUEL [Suspect]
     Active Substance: QUETIAPINE FUMARATE
     Dosage: 75 MG, QD
     Route: 065
     Dates: start: 20150420, end: 20150420
  2. SEROQUEL [Suspect]
     Active Substance: QUETIAPINE FUMARATE
     Dosage: 25 MG, QD
     Route: 065
     Dates: start: 20150423, end: 20150427
  3. TRITTICO [Interacting]
     Active Substance: TRAZODONE HYDROCHLORIDE
     Indication: PRODUCT USED FOR UNKNOWN INDICATION
     Dosage: 150 MG, QD
     Route: 065
     Dates: end: 20150119
  4. TRITTICO [Interacting]
     Active Substance: TRAZODONE HYDROCHLORIDE
     Dosage: 150 MG, QD
     Route: 065
     Dates: start: 20150213, end: 20150216
  5. RIVOTRIL [Concomitant]
     Active Substance: CLONAZEPAM
     Dosage: 0.5 MG, QD
     Route: 065
     Dates: start: 20150504
  6. GEWACALM [Suspect]
     Active Substance: DIAZEPAM
     Dosage: 10 MG, QD
     Route: 065
     Dates: start: 20150221, end: 20150222
  7. TRITTICO [Interacting]
     Active Substance: TRAZODONE HYDROCHLORIDE
     Dosage: 300 MG, QD
     Route: 048
     Dates: start: 20150217, end: 20150420
  8. TRITTICO [Interacting]
     Active Substance: TRAZODONE HYDROCHLORIDE
     Dosage: 250 MG, QD
     Route: 065
     Dates: start: 20150429, end: 20150429
  9. SEROQUEL [Suspect]
     Active Substance: QUETIAPINE FUMARATE
     Dosage: UNK
     Dates: end: 20150212
  10. SEROQUEL [Suspect]
     Active Substance: QUETIAPINE FUMARATE
     Dosage: 100 MG, QD
     Route: 048
     Dates: start: 20150213, end: 20150419
  11. TRITTICO [Interacting]
     Active Substance: TRAZODONE HYDROCHLORIDE
     Dosage: 300 MG, QD
     Route: 065
     Dates: start: 20150425, end: 20150428
  12. TRITTICO [Interacting]
     Active Substance: TRAZODONE HYDROCHLORIDE
     Dosage: 150 MG, QD
     Route: 065
     Dates: start: 20150506
  13. GEWACALM [Suspect]
     Active Substance: DIAZEPAM
     Dosage: 20 MG, QD
     Route: 065
     Dates: start: 20150213, end: 20150220
  14. OLEOVIT D3 [Concomitant]
     Active Substance: CHOLECALCIFEROL
     Indication: PRODUCT USED FOR UNKNOWN INDICATION
     Dosage: 30 GTT, WEEKLY (1/W)
     Route: 065
     Dates: start: 20150226
  15. CEVITOL                            /00008001/ [Concomitant]
     Indication: PRODUCT USED FOR UNKNOWN INDICATION
     Dosage: UNK UNK, UNKNOWN
     Route: 065
     Dates: start: 20150413, end: 20150503
  16. CIPRALEX [Suspect]
     Active Substance: ESCITALOPRAM OXALATE
     Indication: PRODUCT USED FOR UNKNOWN INDICATION
     Dosage: 20 MG, QD
     Route: 065
     Dates: start: 20150214, end: 20150309
  17. CIPRALEX [Suspect]
     Active Substance: ESCITALOPRAM OXALATE
     Dosage: 30 MG, UNKNOWN
     Route: 065
     Dates: start: 20150310
  18. GEWACALM [Suspect]
     Active Substance: DIAZEPAM
     Indication: PRODUCT USED FOR UNKNOWN INDICATION
     Dosage: 30 MG, QD
     Route: 065
     Dates: end: 20150212
  19. RIVOTRIL [Concomitant]
     Active Substance: CLONAZEPAM
     Indication: PRODUCT USED FOR UNKNOWN INDICATION
     Dosage: 2 MG, QD
     Route: 065
     Dates: start: 20150213, end: 20150224
  20. RIVOTRIL [Concomitant]
     Active Substance: CLONAZEPAM
     Dosage: 1.25 MG, QD
     Route: 065
     Dates: start: 20150308, end: 20150329
  21. CALCIUM GLYCEROPHOSPHATE\CELLULOSE\POLYETHYLENE GLYCOL\SACCHARIN SODIUM\SODIUM HYDROXIDE\SODIUM LAURYL SULFATE\SODIUM MAGNESIUM SILICATE\SODIUM MONOFLUOROPHOSPHATE\SORBITOL\WATER [Concomitant]
     Active Substance: CALCIUM GLYCEROPHOSPHATE\POLYETHYLENE GLYCOLS\POWDERED CELLULOSE\SACCHARIN SODIUM DIHYDRATE\SODIUM HYDROXIDE\SODIUM LAURYL SULFATE\SODIUM MAGNESIUM SILICATE\SODIUM MONOFLUOROPHOSPHATE\SORBITOL\WATER
     Indication: PRODUCT USED FOR UNKNOWN INDICATION
     Dosage: UNK, UNKNOWN
     Route: 065
  22. CYMBALTA [Suspect]
     Active Substance: DULOXETINE HYDROCHLORIDE
     Indication: DEPRESSION
     Dosage: 60 MG, UNKNOWN
     Route: 048
     Dates: start: 20150316, end: 20150408
  23. TRITTICO [Interacting]
     Active Substance: TRAZODONE HYDROCHLORIDE
     Dosage: 200 MG, QD
     Route: 065
     Dates: start: 20150430, end: 20150505
  24. RIVOTRIL [Concomitant]
     Active Substance: CLONAZEPAM
     Dosage: 1.5 MG, QD
     Route: 065
     Dates: start: 20150302, end: 20150307
  25. CYMBALTA [Interacting]
     Active Substance: DULOXETINE HYDROCHLORIDE
     Indication: GENERALISED ANXIETY DISORDER
  26. RISPERDAL [Suspect]
     Active Substance: RISPERIDONE
     Indication: PRODUCT USED FOR UNKNOWN INDICATION
     Dosage: 1 MG, UNK
     Route: 065
     Dates: end: 20150329
  27. SEROQUEL [Suspect]
     Active Substance: QUETIAPINE FUMARATE
     Indication: PRODUCT USED FOR UNKNOWN INDICATION
     Dosage: 50 MG, QD
     Route: 065
     Dates: start: 201501, end: 201501
  28. GEWACALM [Suspect]
     Active Substance: DIAZEPAM
     Dosage: 5 MG, QD
     Route: 065
     Dates: start: 20150223, end: 20150224
  29. RIVOTRIL [Concomitant]
     Active Substance: CLONAZEPAM
     Dosage: 2.5 MG, QD
     Route: 065
     Dates: start: 20150225, end: 20150301
  30. SEROQUEL [Suspect]
     Active Substance: QUETIAPINE FUMARATE
     Dosage: 50 MG, QD
     Route: 065
     Dates: start: 20150421, end: 20150422
  31. RIVOTRIL [Concomitant]
     Active Substance: CLONAZEPAM
     Dosage: 1 MG, QD
     Route: 065
     Dates: start: 20150330, end: 20150503

REACTIONS (6)
  - Hepatic steato-fibrosis [Unknown]
  - Renal cyst [Unknown]
  - Drug interaction [Unknown]
  - Leiomyoma [Unknown]
  - Hyperprolactinaemia [Recovered/Resolved]
  - Hepatic enzyme increased [Recovering/Resolving]

NARRATIVE: CASE EVENT DATE: 201503
